FAERS Safety Report 7733819-X (Version None)
Quarter: 2011Q3

REPORT INFORMATION
  Report Type: 
  Country: None (occurrence: None)
  Receive Date: 20110907
  Receipt Date: 20110901
  Transmission Date: 20111222
  Serious: Yes (Hospitalization, Other)
  Sender: FDA-Public Use
  Company Number: PHEH2009US13607

PATIENT
  Sex: Male

DRUGS (41)
  1. ZOMETA [Suspect]
     Indication: METASTASES TO CENTRAL NERVOUS SYSTEM
     Dosage: UNK
     Dates: start: 20040101, end: 20080501
  2. KETOCONAZOLE [Concomitant]
     Dosage: 200 MG, TID2SDO
  3. MIDAZOLAM HCL [Concomitant]
     Indication: ANXIETY
  4. ENALAPRIL MALEATE [Concomitant]
     Dosage: 10 MG, UNK
  5. CALCIUM CARBONATE [Concomitant]
     Dosage: 500 MG, UNK
  6. SIMVASTATIN [Concomitant]
     Dosage: 80 MG, QD
  7. TRIAMCINOLONE [Concomitant]
  8. TETANUS VACCINE [Concomitant]
     Dosage: UNK
     Dates: start: 19990406
  9. LOTENSIN [Concomitant]
     Dosage: 10 MG, QD
  10. SEROQUEL [Concomitant]
     Dosage: 50 MG, TID
  11. MIRTAZAPINE [Concomitant]
     Dosage: 30 MG, UNK
  12. TIOTROPIUM [Concomitant]
  13. CORTEF [Concomitant]
     Dosage: 5 MG, UNK
  14. DARVOCET-N 50 [Concomitant]
  15. XALATAN [Concomitant]
  16. SPIRIVA [Concomitant]
  17. PNEUMOVAX 23 [Concomitant]
     Dosage: 0.5 ML, UNK
     Dates: start: 19991227
  18. XANAX [Concomitant]
     Dosage: 0.25 MG, TID
  19. PAROXETINE HCL [Concomitant]
     Dosage: 15 MG, BID
  20. TIMOLOL MALEATE [Concomitant]
  21. INFLUENZA VACCINE [Concomitant]
     Dosage: UNK
     Dates: start: 20100101
  22. NORPACE [Concomitant]
     Dosage: 200 MG, TID
  23. PILOSTAT [Concomitant]
  24. CLEOCIN HYDROCHLORIDE [Concomitant]
     Dosage: 300 MG, TID
  25. REMERON [Concomitant]
     Dosage: 30 MG, QD
  26. ALBUTEROL SULFATE AUTOHALER [Concomitant]
  27. FERROUS SULFATE TAB [Concomitant]
     Dosage: 325 MG, QD
     Route: 048
  28. ALPHAGAN [Concomitant]
  29. VASOTEC [Concomitant]
     Dosage: 10 MG, QD
  30. PAXIL [Concomitant]
     Dosage: 25 MG, BID
  31. ALPRAZOLAM [Concomitant]
     Dosage: 0.5 MG, TID
  32. MOMETASONE FUROATE [Concomitant]
  33. TYLENOL-500 [Concomitant]
     Dosage: 650 MG, Q4H PRN
     Route: 048
  34. EFFEXOR [Concomitant]
     Dosage: 150 MG, QD
  35. ADVAIR DISKUS 100/50 [Concomitant]
  36. TRUSOPT [Concomitant]
  37. VITAMIN D [Concomitant]
     Dosage: 1000 IU, UNK
  38. LATANOPROST [Concomitant]
  39. MECLIZINE [Concomitant]
     Dosage: 50 MG, QID
  40. FLUTICASONE W/SALMETEROL [Concomitant]
  41. COLACE [Concomitant]
     Dosage: 100 MG, BID
     Route: 048

REACTIONS (32)
  - OSTEONECROSIS OF JAW [None]
  - ANXIETY [None]
  - HYPERLIPIDAEMIA [None]
  - CARDIAC FAILURE CONGESTIVE [None]
  - RENAL CYST [None]
  - PROSTATE CANCER [None]
  - HAEMATOMA [None]
  - CORONARY ARTERY DISEASE [None]
  - GLUCOSE TOLERANCE IMPAIRED [None]
  - DEPRESSION [None]
  - AORTIC VALVE INCOMPETENCE [None]
  - INJURY [None]
  - ANHEDONIA [None]
  - HEARING IMPAIRED [None]
  - BACK PAIN [None]
  - DYSPNOEA [None]
  - RESPIRATORY DISORDER [None]
  - PAIN [None]
  - METASTASES TO BONE [None]
  - FALL [None]
  - CHRONIC OBSTRUCTIVE PULMONARY DISEASE [None]
  - GLAUCOMA [None]
  - PULMONARY HYPERTENSION [None]
  - OSTEOARTHRITIS [None]
  - DISABILITY [None]
  - ANAEMIA [None]
  - BUNDLE BRANCH BLOCK RIGHT [None]
  - NEPHROLITHIASIS [None]
  - ADRENAL INSUFFICIENCY [None]
  - EMPHYSEMA [None]
  - AORTIC DILATATION [None]
  - AORTIC VALVE SCLEROSIS [None]
